FAERS Safety Report 8452019-1 (Version None)
Quarter: 2012Q2

REPORT INFORMATION
  Report Type: 
  Country: None (occurrence: None)
  Receive Date: 20120620
  Receipt Date: 20120423
  Transmission Date: 20120825
  Serious: No
  Sender: FDA-Public Use
  Company Number: US-VERTEX PHARMACEUTICALS INC.-AE-2012-004533

PATIENT
  Sex: Female
  Weight: 58.566 kg

DRUGS (4)
  1. PEGASYS [Concomitant]
     Indication: HEPATITIS C
     Route: 058
     Dates: start: 20120307, end: 20120330
  2. RIBAVIRIN [Concomitant]
     Route: 048
     Dates: start: 20120314, end: 20120330
  3. INCIVEK [Suspect]
     Indication: HEPATITIS C
     Route: 048
     Dates: start: 20120307, end: 20120330
  4. RIBAVIRIN [Concomitant]
     Indication: HEPATITIS C
     Route: 048
     Dates: start: 20120307, end: 20120313

REACTIONS (5)
  - ORAL PAIN [None]
  - RASH PRURITIC [None]
  - HAEMOGLOBIN DECREASED [None]
  - SKIN EXFOLIATION [None]
  - EPISTAXIS [None]
